FAERS Safety Report 13472820 (Version 1)
Quarter: 2017Q2

REPORT INFORMATION
  Report Type: Spontaneous
  Country: US (occurrence: US)
  Receive Date: 20170424
  Receipt Date: 20170424
  Transmission Date: 20170830
  Serious: Yes (Other)
  Sender: FDA-Public Use
  Company Number: None

PATIENT
  Age: 53 Year
  Sex: Male
  Weight: 130 kg

DRUGS (14)
  1. ZOLOFT [Concomitant]
     Active Substance: SERTRALINE HYDROCHLORIDE
  2. TOUJEO [Suspect]
     Active Substance: INSULIN GLARGINE
     Indication: DIABETES MELLITUS
     Route: 058
     Dates: start: 20170410, end: 20170418
  3. LISIONPRIL (PRINIVIL, ZESTRIL) [Concomitant]
  4. ALBUTEROL (PROVENTIL) [Concomitant]
  5. LIPITOR [Concomitant]
     Active Substance: ATORVASTATIN CALCIUM
  6. CYCLOBENZAPRINE (FLEXERIL) [Concomitant]
  7. GLUCODE BLOOD VI TEST STRIPS (ONE TOUNCH ULTRA) [Concomitant]
  8. ASPIRIN. [Concomitant]
     Active Substance: ASPIRIN
  9. METFORMIN  (GLUCOPHAGE) [Concomitant]
  10. BUSPAR [Concomitant]
     Active Substance: BUSPIRONE HYDROCHLORIDE
  11. HYDROCODONE-ACETAMOPHINE (NORCO) [Concomitant]
  12. MOTRIN [Concomitant]
     Active Substance: IBUPROFEN
  13. ONE TOUCH DELICA LANCETS MISC [Concomitant]
  14. TERAZOSIN (HYTRIN) [Concomitant]

REACTIONS (2)
  - Pain [None]
  - Injection site hypersensitivity [None]

NARRATIVE: CASE EVENT DATE: 20170420
